FAERS Safety Report 16040509 (Version 1)
Quarter: 2019Q2

REPORT INFORMATION
  Report Type: Spontaneous
  Country: US (occurrence: US)
  Receive Date: 20190305
  Receipt Date: 20190305
  Transmission Date: 20190711
  Serious: Yes (Other)
  Sender: FDA-Public Use
  Company Number: None

PATIENT
  Age: 29 Year
  Sex: Female
  Weight: 49.5 kg

DRUGS (1)
  1. GENERIC EMETROL [DEXTROSE\FRUCTOSE\PHOSPHORIC ACID] [Suspect]
     Active Substance: DEXTROSE\FRUCTOSE\PHOSPHORIC ACID
     Indication: NAUSEA
     Dates: start: 20190304, end: 20190304

REACTIONS (1)
  - Urticaria [None]

NARRATIVE: CASE EVENT DATE: 20190304
